FAERS Safety Report 19205077 (Version 2)
Quarter: 2021Q3

REPORT INFORMATION
  Report Type: Report from Study
  Country: US (occurrence: US)
  Receive Date: 20210503
  Receipt Date: 20210826
  Transmission Date: 20211014
  Serious: No
  Sender: FDA-Public Use
  Company Number: US-SA-2021SA145392

PATIENT
  Age: 29 Year
  Sex: Male

DRUGS (2)
  1. CEREZYME [Suspect]
     Active Substance: IMIGLUCERASE
     Indication: GAUCHER^S DISEASE
     Dosage: 2400 IU, QOW
     Route: 042
     Dates: start: 201603
  2. CEREZYME [Suspect]
     Active Substance: IMIGLUCERASE
     Dosage: 2400 IU, QOW
     Route: 042
     Dates: start: 20210430

REACTIONS (2)
  - Paternal exposure timing unspecified [Unknown]
  - Product dose omission issue [Unknown]

NARRATIVE: CASE EVENT DATE: 202108
